FAERS Safety Report 21453697 (Version 1)
Quarter: 2022Q4

REPORT INFORMATION
  Report Type: Spontaneous
  Country: FR (occurrence: FR)
  Receive Date: 20221013
  Receipt Date: 20221013
  Transmission Date: 20230113
  Serious: Yes (Death)
  Sender: FDA-Public Use
  Company Number: None

PATIENT
  Age: 77 Year
  Sex: Male
  Weight: 88 kg

DRUGS (4)
  1. PIPERACILLIN SODIUM\TAZOBACTAM SODIUM [Suspect]
     Active Substance: PIPERACILLIN SODIUM\TAZOBACTAM SODIUM
     Indication: Device related infection
     Dosage: 12 G, 1X/DAY
     Route: 042
     Dates: start: 20220823, end: 20220829
  2. CLINDAMYCIN HYDROCHLORIDE [Suspect]
     Active Substance: CLINDAMYCIN HYDROCHLORIDE
     Indication: Device related infection
     Dosage: 600 MG, 3X/DAY
     Route: 048
     Dates: start: 20220829, end: 20220920
  3. DAPTOMYCIN [Suspect]
     Active Substance: DAPTOMYCIN
     Indication: Device related infection
     Dosage: 850 MG, 1X/DAY
     Route: 042
     Dates: start: 20220823, end: 20220907
  4. PRISTINAMYCIN [Concomitant]
     Active Substance: PRISTINAMYCIN

REACTIONS (1)
  - Eosinophilic pneumonia [Fatal]

NARRATIVE: CASE EVENT DATE: 20220916
